FAERS Safety Report 4510025-3 (Version None)
Quarter: 2004Q4

REPORT INFORMATION
  Report Type: 
  Country: None (occurrence: None)
  Receive Date: 20041119
  Receipt Date: 20041111
  Transmission Date: 20050328
  Serious: Yes (Other)
  Sender: FDA-Public Use
  Company Number: TN-JNJFOC-20041103188

PATIENT
  Age: 6 Year
  Sex: Female

DRUGS (1)
  1. ACETAMINOPHEN [Suspect]
     Indication: HEADACHE
     Dosage: 1 DOSE (S), 1 IN 1 TOTAL, ORAL
     Route: 048

REACTIONS (6)
  - CONJUNCTIVITIS [None]
  - DRUG HYPERSENSITIVITY [None]
  - DRUG INTOLERANCE [None]
  - FACE OEDEMA [None]
  - RESPIRATORY DISTRESS [None]
  - URTICARIA [None]
